FAERS Safety Report 16118214 (Version 2)
Quarter: 2019Q2

REPORT INFORMATION
  Report Type: Report from Study
  Country: US (occurrence: US)
  Receive Date: 20190326
  Receipt Date: 20190516
  Transmission Date: 20190711
  Serious: Yes (Hospitalization, Other)
  Sender: FDA-Public Use
  Company Number: US-JNJFOC-20190335053

PATIENT
  Age: 78 Year
  Sex: Male

DRUGS (24)
  1. COREG [Concomitant]
     Active Substance: CARVEDILOL
     Route: 048
  2. VOLTAREN [Concomitant]
     Active Substance: DICLOFENAC SODIUM
  3. FERROUS SULFATE. [Concomitant]
     Active Substance: FERROUS SULFATE
     Route: 048
  4. NEURONTIN [Concomitant]
     Active Substance: GABAPENTIN
     Dates: start: 20190329, end: 20190428
  5. ALDACTONE [Concomitant]
     Active Substance: SPIRONOLACTONE
  6. CYMBALTA [Concomitant]
     Active Substance: DULOXETINE HYDROCHLORIDE
  7. VITAMIN B12 [Concomitant]
     Active Substance: CYANOCOBALAMIN
     Route: 048
  8. NITROSTAT [Concomitant]
     Active Substance: NITROGLYCERIN
     Route: 060
  9. DEMADEX [Concomitant]
     Active Substance: TORSEMIDE
     Route: 048
  10. VANCOMYCIN [Concomitant]
     Active Substance: VANCOMYCIN
     Indication: CLOSTRIDIUM DIFFICILE INFECTION
     Route: 048
     Dates: start: 20190329, end: 20190405
  11. IMBRUVICA [Suspect]
     Active Substance: IBRUTINIB
     Indication: LYMPHOCYTIC LEUKAEMIA
     Route: 048
     Dates: start: 20190212, end: 2019
  12. DUONEB [Concomitant]
     Active Substance: ALBUTEROL SULFATE\IPRATROPIUM BROMIDE
     Dates: start: 20190329, end: 20190428
  13. ZYLOPRIM [Concomitant]
     Active Substance: ALLOPURINOL
     Route: 048
     Dates: start: 20180409
  14. LIPITOR [Concomitant]
     Active Substance: ATORVASTATIN CALCIUM
     Route: 048
     Dates: start: 20181207
  15. FOLVITE [Concomitant]
     Active Substance: FOLIC ACID
     Route: 048
  16. GLUCOSE [Concomitant]
     Active Substance: DEXTROSE
     Dates: start: 20190204
  17. XYREM [Concomitant]
     Active Substance: SODIUM OXYBATE
  18. LEVOTHYROXINE. [Concomitant]
     Active Substance: LEVOTHYROXINE
  19. CLARITIN [Concomitant]
     Active Substance: LORATADINE
     Route: 048
  20. MUCINEX [Concomitant]
     Active Substance: GUAIFENESIN
     Route: 048
  21. COZAAR [Concomitant]
     Active Substance: LOSARTAN POTASSIUM
     Dates: start: 20190329
  22. TYLENOL [Concomitant]
     Active Substance: ACETAMINOPHEN
     Route: 048
  23. MODAFINIL. [Concomitant]
     Active Substance: MODAFINIL
     Route: 048
  24. REQUIP [Concomitant]
     Active Substance: ROPINIROLE HYDROCHLORIDE
     Route: 048
     Dates: start: 20181009

REACTIONS (22)
  - Type 2 diabetes mellitus [Unknown]
  - Subarachnoid haemorrhage [Not Recovered/Not Resolved]
  - Gastrointestinal haemorrhage [Unknown]
  - Cardiac failure acute [Unknown]
  - Clostridium difficile colitis [Unknown]
  - Incorrect dose administered [Unknown]
  - Hypomagnesaemia [Unknown]
  - Narcolepsy [Unknown]
  - Skin wound [Unknown]
  - Gastrooesophageal reflux disease [Unknown]
  - Urinary tract infection [Unknown]
  - Hypokalaemia [Recovered/Resolved]
  - Fall [Unknown]
  - Off label use [Unknown]
  - Troponin increased [Unknown]
  - Restless legs syndrome [Unknown]
  - Neuropathy peripheral [Unknown]
  - Apnoea [Unknown]
  - Sepsis [Unknown]
  - Skin abrasion [Unknown]
  - Haematoma [Unknown]
  - Acute kidney injury [Unknown]

NARRATIVE: CASE EVENT DATE: 2019
